FAERS Safety Report 9308537 (Version 2)
Quarter: 2014Q1

REPORT INFORMATION
  Report Type: Spontaneous
  Country: US (occurrence: US)
  Receive Date: 20130524
  Receipt Date: 20140117
  Transmission Date: 20141002
  Serious: Yes (Death, Congenital Anomaly, Other)
  Sender: FDA-Public Use
  Company Number: US-PFIZER INC-2013156941

PATIENT
  Sex: Male

DRUGS (3)
  1. ZOLOFT [Suspect]
     Dosage: UNK
     Route: 064
     Dates: start: 2008, end: 2012
  2. SERTRALINE HCL [Suspect]
     Dosage: UNK
     Route: 064
     Dates: start: 2008, end: 2012
  3. AMBIEN [Concomitant]
     Dosage: UNK
     Route: 064

REACTIONS (6)
  - Maternal exposure during pregnancy [Fatal]
  - Pulmonary hypoplasia [Fatal]
  - Cleft lip and palate [Fatal]
  - Microcephaly [Fatal]
  - Holoprosencephaly [Fatal]
  - Spina bifida [Fatal]
